FAERS Safety Report 5284982-4 (Version None)
Quarter: 2007Q2

REPORT INFORMATION
  Report Type: 
  Country: None (occurrence: None)
  Receive Date: 20070403
  Receipt Date: 20070330
  Transmission Date: 20071010
  Serious: No
  Sender: FDA-Public Use
  Company Number: 2006UW10762

PATIENT
  Age: 10640 Day
  Sex: Male
  Weight: 113.6 kg

DRUGS (4)
  1. SEROQUEL [Suspect]
     Indication: SLEEP DISORDER
     Route: 048
     Dates: start: 20031209
  2. ABILIFY [Concomitant]
  3. HALDOL [Concomitant]
  4. THORAZINE [Concomitant]

REACTIONS (1)
  - DIABETES MELLITUS [None]
